FAERS Safety Report 6390740-X (Version None)
Quarter: 2009Q4

REPORT INFORMATION
  Report Type: 
  Country: None (occurrence: None)
  Receive Date: 20091006
  Receipt Date: 20090930
  Transmission Date: 20100525
  Serious: Yes (Death, Life-Threatening, Hospitalization)
  Sender: FDA-Public Use
  Company Number: PHHY2008GR29753

PATIENT
  Sex: Female

DRUGS (7)
  1. CERTICAN [Suspect]
     Indication: HEART TRANSPLANT
     Dosage: 1.5 MG PER DAY
     Route: 048
     Dates: start: 20081023, end: 20081130
  2. CYCLOSPORINE [Interacting]
     Indication: HEART TRANSPLANT
     Dosage: 125 MG, BID
     Dates: start: 19981017, end: 20081130
  3. FLUVASTATIN [Interacting]
     Indication: DYSLIPIDAEMIA
     Dosage: 80 MG/DAY
     Dates: start: 20080213, end: 20081127
  4. PALIPERIDONE [Concomitant]
     Indication: BIPOLAR I DISORDER
     Dosage: 6 MG/DAY
     Dates: start: 20050101, end: 20081204
  5. TOPIRAMATE [Concomitant]
     Indication: BIPOLAR I DISORDER
     Dosage: 25 MG, BID
     Dates: start: 20050101, end: 20081204
  6. FLUOXETINE [Concomitant]
     Indication: BIPOLAR I DISORDER
     Dosage: 20 MG/DAY
     Dates: start: 20050101, end: 20081204
  7. FLUOXETINE [Concomitant]
     Dosage: 10 MG/DAY

REACTIONS (18)
  - ACUTE RESPIRATORY FAILURE [None]
  - BLOOD GASES ABNORMAL [None]
  - CHOLECYSTITIS [None]
  - CHOLECYSTOSTOMY [None]
  - DIALYSIS [None]
  - DYSPNOEA [None]
  - EXTUBATION [None]
  - HAEMORRHAGE URINARY TRACT [None]
  - HYPOTHERMIA [None]
  - HYPOXIA [None]
  - LUNG CONSOLIDATION [None]
  - MULTI-ORGAN FAILURE [None]
  - PULMONARY ALVEOLAR HAEMORRHAGE [None]
  - PYREXIA [None]
  - RENAL FAILURE ACUTE [None]
  - RHABDOMYOLYSIS [None]
  - SEPSIS [None]
  - TACHYPNOEA [None]
